FAERS Safety Report 4872862-5 (Version None)
Quarter: 2005Q4

REPORT INFORMATION
  Report Type: 
  Country: None (occurrence: None)
  Receive Date: 20051201
  Receipt Date: 20050718
  Transmission Date: 20060501
  Serious: No
  Sender: FDA-Public Use
  Company Number: 2005PV000854

PATIENT
  Age: 73 Year
  Sex: Male
  Weight: 120.2032 kg

DRUGS (21)
  1. BYETTA [Suspect]
     Indication: DIABETES MELLITUS NON-INSULIN-DEPENDENT
     Dosage: SEE IMAGE
     Route: 058
     Dates: start: 20050623, end: 20050723
  2. BYETTA [Suspect]
     Indication: DIABETES MELLITUS NON-INSULIN-DEPENDENT
     Dosage: SEE IMAGE
     Route: 058
     Dates: start: 20050723
  3. BYETTA [Suspect]
  4. PREVACID [Concomitant]
  5. ISOSORBIDE [Concomitant]
  6. DILTIAZEM [Concomitant]
  7. NEURONTIN [Concomitant]
  8. LEVOXYL [Concomitant]
  9. ENALAPRIL [Concomitant]
  10. ATENOLOL [Concomitant]
  11. FUROSEMIDE [Concomitant]
  12. WARFARIN [Concomitant]
  13. ZOCOR [Concomitant]
  14. UNIPHYL [Concomitant]
  15. FLOMAX [Concomitant]
  16. CYMBALTA [Concomitant]
  17. STOOL SOFTENER [Concomitant]
  18. VITAMIN B COMPLEX CAP [Concomitant]
  19. OXYGEN [Concomitant]
  20. PRANDIN [Concomitant]
  21. POTASSIUM KCL [Concomitant]

REACTIONS (7)
  - BLOOD GLUCOSE DECREASED [None]
  - CONSTIPATION [None]
  - DYSPEPSIA [None]
  - FALL [None]
  - MALAISE [None]
  - STOMACH DISCOMFORT [None]
  - SYNCOPE [None]
